FAERS Safety Report 8983196 (Version 9)
Quarter: 2013Q4

REPORT INFORMATION
  Report Type: Report from Study
  Country: AU (occurrence: AU)
  Receive Date: 20121224
  Receipt Date: 20131112
  Transmission Date: 20140711
  Serious: Yes (Hospitalization, Other)
  Sender: FDA-Public Use
  Company Number: PHHY2011AU72735

PATIENT
  Age: 76 Year
  Sex: Female

DRUGS (2)
  1. SANDOSTATIN LAR [Suspect]
     Indication: ACROMEGALY
     Dosage: 30 MG, UNK
     Route: 030
     Dates: start: 2001, end: 201212
  2. SANDOSTATIN LAR [Suspect]
     Dosage: 30 UNK, UNK
     Route: 030

REACTIONS (9)
  - Biliary sepsis [Recovering/Resolving]
  - Carcinoid syndrome [Recovering/Resolving]
  - Cholangitis [Recovered/Resolved with Sequelae]
  - Cholelithiasis [Unknown]
  - Blood glucose decreased [Unknown]
  - Hepatic lesion [Unknown]
  - Oxygen saturation abnormal [Unknown]
  - Fatigue [Unknown]
  - Asthenia [Unknown]
